FAERS Safety Report 7138313-5 (Version None)
Quarter: 2010Q4

REPORT INFORMATION
  Report Type: 
  Country: None (occurrence: None)
  Receive Date: 20101206
  Receipt Date: 20101129
  Transmission Date: 20110411
  Serious: Yes (Hospitalization)
  Sender: FDA-Public Use
  Company Number: CN-ROCHE-744863

PATIENT
  Age: 48 Year
  Sex: Male

DRUGS (2)
  1. PEGINTERFERON ALFA-2A [Suspect]
     Indication: HEPATITIS B
     Route: 058
     Dates: start: 20090224, end: 20090425
  2. PEGINTERFERON ALFA-2A [Suspect]
     Route: 058
     Dates: start: 20090505, end: 20100921

REACTIONS (1)
  - HEPATIC NEOPLASM MALIGNANT [None]
